FAERS Safety Report 21396988 (Version 1)
Quarter: 2022Q3

REPORT INFORMATION
  Report Type: Spontaneous
  Country: US (occurrence: US)
  Receive Date: 20220930
  Receipt Date: 20220930
  Transmission Date: 20221027
  Serious: No
  Sender: FDA-Public Use
  Company Number: US-PFIZER INC-PV202200073290

PATIENT
  Age: 52 Year
  Sex: Female

DRUGS (3)
  1. XELJANZ [Suspect]
     Active Substance: TOFACITINIB CITRATE
     Indication: Psoriasis
     Dosage: 5 MG, 2X/DAY
  2. XELJANZ [Suspect]
     Active Substance: TOFACITINIB CITRATE
     Indication: Pemphigoid
  3. XELJANZ [Suspect]
     Active Substance: TOFACITINIB CITRATE
     Indication: Mucous membrane pemphigoid

REACTIONS (5)
  - Off label use [Unknown]
  - Eating disorder [Unknown]
  - Sleep disorder [Unknown]
  - Pain [Unknown]
  - Condition aggravated [Unknown]
